FAERS Safety Report 21527216 (Version 1)
Quarter: 2022Q4

REPORT INFORMATION
  Report Type: Report from Study
  Country: FR (occurrence: FR)
  Receive Date: 20221031
  Receipt Date: 20221031
  Transmission Date: 20230113
  Serious: Yes (Death)
  Sender: FDA-Public Use
  Company Number: FR-NOVARTISPH-NVSC2022FR243767

PATIENT
  Sex: Male
  Weight: 60 kg

DRUGS (2)
  1. LUTETIUM LU-177 VIPIVOTIDE TETRAXETAN [Suspect]
     Active Substance: LUTETIUM LU-177 VIPIVOTIDE TETRAXETAN
     Indication: Prostate cancer
     Dosage: UNK (7241) (ONCE) (FIRST CYCLE)
     Route: 065
     Dates: start: 20220214, end: 20220214
  2. LUTETIUM LU-177 VIPIVOTIDE TETRAXETAN [Suspect]
     Active Substance: LUTETIUM LU-177 VIPIVOTIDE TETRAXETAN
     Dosage: UNK (7282) (ONCE) (SECOND CYCLE)
     Route: 065
     Dates: start: 20220328, end: 20220328

REACTIONS (1)
  - Myocardial infarction [Fatal]
